FAERS Safety Report 16841511 (Version 2)
Quarter: 2019Q4

REPORT INFORMATION
  Report Type: Not Available
  Country: US (occurrence: US)
  Receive Date: 20190923
  Receipt Date: 20191012
  Transmission Date: 20200122
  Serious: Yes (Hospitalization)
  Sender: FDA-Public Use
  Company Number: US-NEUROCRINE BIOSCIENCES INC.-2019NBI02667

PATIENT
  Age: 46 Year
  Sex: Female

DRUGS (6)
  1. PROPRANOLOL ER [Concomitant]
     Active Substance: PROPRANOLOL HYDROCHLORIDE
     Indication: TREMOR
  2. INGREZZA [Suspect]
     Active Substance: VALBENAZINE
     Route: 048
     Dates: start: 20190909
  3. GABAPENTIN. [Concomitant]
     Active Substance: GABAPENTIN
     Dates: start: 2019
  4. INGREZZA [Suspect]
     Active Substance: VALBENAZINE
     Indication: TARDIVE DYSKINESIA
     Route: 048
     Dates: start: 20180515, end: 20190823
  5. LITHIUM. [Suspect]
     Active Substance: LITHIUM
     Indication: BIPOLAR DISORDER
     Dates: end: 20190824
  6. REQUIP [Concomitant]
     Active Substance: ROPINIROLE HYDROCHLORIDE
     Indication: BIPOLAR DISORDER
     Dates: start: 2017

REACTIONS (9)
  - Alopecia [Unknown]
  - Nausea [Unknown]
  - Administration site thrombosis [Recovered/Resolved]
  - Post procedural complication [Recovered/Resolved]
  - Depression [Recovering/Resolving]
  - Toxicity to various agents [Recovered/Resolved]
  - Somnolence [Unknown]
  - Colorectal cancer [Not Recovered/Not Resolved]
  - Dehydration [Unknown]

NARRATIVE: CASE EVENT DATE: 20181012
